FAERS Safety Report 9439818 (Version 4)
Quarter: 2013Q3

REPORT INFORMATION
  Report Type: Spontaneous
  Country: US (occurrence: US)
  Receive Date: 20130805
  Receipt Date: 20130926
  Transmission Date: 20140515
  Serious: No
  Sender: FDA-Public Use
  Company Number: US-PFIZER INC-2013221417

PATIENT
  Age: 80 Year
  Sex: Female

DRUGS (7)
  1. BOSULIF [Suspect]
     Indication: CHRONIC MYELOID LEUKAEMIA
     Dosage: 400 MG, 1X/DAY (100MG TABS)
     Route: 048
     Dates: start: 20130626, end: 20130717
  2. VITAMIN D3 [Concomitant]
     Dosage: UNK
  3. PLAVIX [Concomitant]
     Dosage: UNK
  4. PANTOPRAZOLE SODIUM [Concomitant]
     Dosage: UNK
  5. NOVOLOG [Concomitant]
     Dosage: UNK
  6. METOPROLOL SUCCINATE [Concomitant]
     Dosage: UNK
  7. LEVEMIR [Concomitant]
     Dosage: UNK

REACTIONS (2)
  - Urticaria [Not Recovered/Not Resolved]
  - Rash [Not Recovered/Not Resolved]
